FAERS Safety Report 15417513 (Version 1)
Quarter: 2018Q3

REPORT INFORMATION
  Report Type: Spontaneous
  Country: US (occurrence: US)
  Receive Date: 20180924
  Receipt Date: 20180924
  Transmission Date: 20181010
  Serious: No
  Sender: FDA-Public Use
  Company Number: US-BAYER-2018-178295

PATIENT
  Age: 63 Year
  Sex: Female
  Weight: 67.98 kg

DRUGS (1)
  1. MIRALAX [Suspect]
     Active Substance: POLYETHYLENE GLYCOL 3350
     Indication: GASTROINTESTINAL DISORDER
     Dosage: UNK, 17 G IN 4?8 OZ BEVERAGE DOSE
     Route: 048
     Dates: start: 20180913, end: 20180919

REACTIONS (1)
  - Drug ineffective [Unknown]
